FAERS Safety Report 10847019 (Version 2)
Quarter: 2016Q2

REPORT INFORMATION
  Report Type: Report from Study
  Country: US (occurrence: US)
  Receive Date: 20150220
  Receipt Date: 20160617
  Transmission Date: 20160815
  Serious: Yes (Hospitalization, Other)
  Sender: FDA-Public Use
  Company Number: US-ARIAD-2014US003884

PATIENT

DRUGS (2)
  1. ALLOPURINOL. [Concomitant]
     Active Substance: ALLOPURINOL
     Indication: GOUT
  2. ICLUSIG [Suspect]
     Active Substance: PONATINIB
     Indication: CHRONIC MYELOID LEUKAEMIA
     Dosage: 45 MG, QD
     Route: 048
     Dates: start: 20140827, end: 20141014

REACTIONS (11)
  - Epistaxis [Unknown]
  - Acute kidney injury [Recovered/Resolved]
  - Lipase increased [Unknown]
  - Bone marrow failure [Unknown]
  - Diarrhoea [Unknown]
  - Neutropenic sepsis [Recovered/Resolved]
  - Flank pain [Unknown]
  - Transaminases increased [Unknown]
  - Abdominal pain upper [Unknown]
  - Disseminated intravascular coagulation [Recovered/Resolved]
  - Splenomegaly [Unknown]

NARRATIVE: CASE EVENT DATE: 20141015
